FAERS Safety Report 15386770 (Version 5)
Quarter: 2018Q4

REPORT INFORMATION
  Report Type: Report from Study
  Country: None (occurrence: ES)
  Receive Date: 20180914
  Receipt Date: 20181121
  Transmission Date: 20190204
  Serious: Yes (Other)
  Sender: FDA-Public Use
  Company Number: ES-ABBVIE-17P-144-2141491-00

PATIENT
  Age: 39 Year
  Sex: Male
  Weight: 118 kg

DRUGS (9)
  1. EMOLYTAR [Concomitant]
     Dates: start: 20120708, end: 20120711
  2. EMOLYTAR [Concomitant]
     Dates: start: 20120905
  3. ETANERCEPT [Concomitant]
     Active Substance: ETANERCEPT
     Dates: start: 20150310
  4. EMOLYTAR [Concomitant]
     Indication: PSORIASIS
     Dates: start: 20100305, end: 20100307
  5. DIFLUCORTOLONE [Concomitant]
     Active Substance: DIFLUCORTOLONE
     Indication: PSORIASIS
     Route: 061
     Dates: start: 20130211
  6. HUMIRA [Suspect]
     Active Substance: ADALIMUMAB
     Indication: PSORIASIS
     Route: 058
     Dates: start: 20100520, end: 20101209
  7. ETANERCEPT [Concomitant]
     Active Substance: ETANERCEPT
     Indication: PSORIASIS
     Dates: start: 20141203, end: 20150309
  8. PARACETAMOL [Concomitant]
     Active Substance: ACETAMINOPHEN
     Indication: ARTHRALGIA
     Dosage: ONLY PAIN
     Dates: start: 20161111
  9. LOPID [Concomitant]
     Active Substance: GEMFIBROZIL
     Indication: HYPERCHOLESTEROLAEMIA
     Dates: start: 20110503

REACTIONS (2)
  - Osteonecrosis [Recovered/Resolved]
  - Osteonecrosis [Recovered/Resolved]

NARRATIVE: CASE EVENT DATE: 20170714
